FAERS Safety Report 5963674-X (Version None)
Quarter: 2008Q4

REPORT INFORMATION
  Report Type: 
  Country: None (occurrence: None)
  Receive Date: 20081124
  Receipt Date: 20081119
  Transmission Date: 20090506
  Serious: Yes (Other)
  Sender: FDA-Public Use
  Company Number: US-ELI_LILLY_AND_COMPANY-US200809002320

PATIENT
  Sex: Female
  Weight: 99.773 kg

DRUGS (3)
  1. BYETTA [Suspect]
     Dosage: UNK, UNKNOWN
     Dates: end: 20070101
  2. HUMALOG [Concomitant]
     Indication: DIABETES MELLITUS
     Dosage: UNK, 2/D
     Dates: start: 20070101
  3. LEVEMIR [Concomitant]
     Dosage: UNK, UNKNOWN

REACTIONS (3)
  - BLOOD GLUCOSE INCREASED [None]
  - LYMPHADENOPATHY [None]
  - METASTATIC NEOPLASM [None]
